FAERS Safety Report 12677892 (Version 1)
Quarter: 2016Q3

REPORT INFORMATION
  Report Type: Spontaneous
  Country: US (occurrence: US)
  Receive Date: 20160823
  Receipt Date: 20160823
  Transmission Date: 20161109
  Serious: No
  Sender: FDA-Public Use
  Company Number: US-TARO-2015TAR01168

PATIENT
  Age: 76 Year
  Sex: Male
  Weight: 65.76 kg

DRUGS (2)
  1. TOPICAL FACIAL TREATMENTS (CALLER DOES NOT KNOW THE NAMES OF THEM) [Concomitant]
     Dosage: UNK
     Route: 061
  2. WARFARIN SODIUM TABLETS USP 2.5MG [Suspect]
     Active Substance: WARFARIN SODIUM
     Indication: ATRIAL FIBRILLATION
     Dosage: 2.5 MG, 1X/DAY
     Route: 048
     Dates: start: 20151013, end: 201512

REACTIONS (2)
  - Product quality issue [Not Recovered/Not Resolved]
  - Drug ineffective [Recovered/Resolved]

NARRATIVE: CASE EVENT DATE: 201511
